FAERS Safety Report 12296783 (Version 1)
Quarter: 2016Q2

REPORT INFORMATION
  Report Type: Spontaneous
  Country: US (occurrence: US)
  Receive Date: 20160422
  Receipt Date: 20160422
  Transmission Date: 20160815
  Serious: Yes (Other)
  Sender: FDA-Public Use
  Company Number: US-BAXTER-2016BAX020701

PATIENT

DRUGS (6)
  1. 0.9% SODIUM CHLORIDE INJECTION [Suspect]
     Active Substance: SODIUM CHLORIDE
     Indication: ANIMAL SCRATCH
     Dosage: 250 CC BAG
     Route: 042
     Dates: start: 20160408, end: 20160408
  2. VANCOMYCIN INJECTION, USP [Suspect]
     Active Substance: VANCOMYCIN
     Indication: ANIMAL SCRATCH
     Dosage: 1400 MG OR 1500 MG, 1/67 CC PER HOUR
     Route: 042
     Dates: start: 20160408, end: 20160408
  3. ERTAPENEM [Suspect]
     Active Substance: ERTAPENEM
     Indication: WOUND INFECTION
  4. ERTAPENEM [Suspect]
     Active Substance: ERTAPENEM
     Indication: ANIMAL SCRATCH
     Dosage: 200ML PER HOUR
     Route: 042
     Dates: start: 20160408, end: 20160408
  5. 0.9% SODIUM CHLORIDE INJECTION [Suspect]
     Active Substance: SODIUM CHLORIDE
     Indication: WOUND INFECTION
  6. VANCOMYCIN INJECTION, USP [Suspect]
     Active Substance: VANCOMYCIN
     Indication: WOUND INFECTION

REACTIONS (2)
  - Pain [Recovered/Resolved]
  - Chest pain [Recovered/Resolved]

NARRATIVE: CASE EVENT DATE: 20160408
